FAERS Safety Report 5294734-7 (Version None)
Quarter: 2007Q2

REPORT INFORMATION
  Report Type: 
  Country: None (occurrence: None)
  Receive Date: 20070412
  Receipt Date: 20070405
  Transmission Date: 20071010
  Serious: Yes (Hospitalization)
  Sender: FDA-Public Use
  Company Number: US-AMGEN-US208182

PATIENT
  Sex: Male

DRUGS (6)
  1. ENBREL [Suspect]
     Indication: RHEUMATOID ARTHRITIS
     Route: 058
     Dates: start: 20060801
  2. ENBREL [Suspect]
     Indication: ANKYLOSING SPONDYLITIS
  3. METHOTREXATE [Concomitant]
  4. SULFASALAZIN [Concomitant]
     Route: 065
     Dates: start: 20060101
  5. PROBENECID [Concomitant]
  6. LEXAPRO [Concomitant]

REACTIONS (3)
  - DEHYDRATION [None]
  - HEPATITIS ACUTE [None]
  - RHABDOMYOLYSIS [None]
